APPROVED DRUG PRODUCT: MEGESTROL ACETATE
Active Ingredient: MEGESTROL ACETATE
Strength: 40MG/ML
Dosage Form/Route: SUSPENSION;ORAL
Application: A076721 | Product #001 | TE Code: AB
Applicant: PHARMOBEDIENT CONSULTING LLC
Approved: Nov 1, 2004 | RLD: No | RS: No | Type: RX